FAERS Safety Report 22385450 (Version 1)
Quarter: 2023Q2

REPORT INFORMATION
  Report Type: Spontaneous
  Country: US (occurrence: US)
  Receive Date: 20230530
  Receipt Date: 20230530
  Transmission Date: 20230721
  Serious: No
  Sender: FDA-Public Use
  Company Number: US-PFIZER INC-202300202327

PATIENT
  Age: 60 Year
  Sex: Male
  Weight: 88.45 kg

DRUGS (4)
  1. PAXLOVID [Suspect]
     Active Substance: NIRMATRELVIR\RITONAVIR
     Indication: COVID-19 treatment
     Dosage: UNK, 2 (150MG) TABLETS AND 1 (100MG) TABLET
     Dates: start: 20230524
  2. ACETAMINOPHEN\HYDROCODONE [Suspect]
     Active Substance: ACETAMINOPHEN\HYDROCODONE
     Dosage: 1 DF
     Dates: start: 20230524
  3. COLCHICINE [Suspect]
     Active Substance: COLCHICINE
     Dosage: UNK
     Dates: start: 20230523, end: 20230523
  4. GUAIFENESIN [Suspect]
     Active Substance: GUAIFENESIN
     Dosage: 1 DF
     Dates: start: 20230524

REACTIONS (3)
  - Nausea [Unknown]
  - Feeling abnormal [Recovered/Resolved]
  - Contraindicated product administered [Unknown]

NARRATIVE: CASE EVENT DATE: 20230524
